FAERS Safety Report 21675048 (Version 1)
Quarter: 2022Q4

REPORT INFORMATION
  Report Type: Report from Study
  Country: US (occurrence: US)
  Receive Date: 20221202
  Receipt Date: 20221202
  Transmission Date: 20230112
  Serious: Yes (Other)
  Sender: FDA-Public Use
  Company Number: US-PFIZER INC-PV202200109085

PATIENT
  Age: 68 Year
  Sex: Female
  Weight: 95.7 kg

DRUGS (9)
  1. DOXYCYCLINE HYCLATE [Suspect]
     Active Substance: DOXYCYCLINE HYCLATE
     Dosage: UNK
  2. TREPROSTINIL [Suspect]
     Active Substance: TREPROSTINIL
     Indication: Pulmonary arterial hypertension
     Dosage: UNK
     Dates: start: 20221012
  3. TREPROSTINIL [Suspect]
     Active Substance: TREPROSTINIL
     Dosage: 16 UG, 4X/DAY
     Dates: start: 202210
  4. TREPROSTINIL [Suspect]
     Active Substance: TREPROSTINIL
     Dosage: 32 UG, 4X/DAY
     Dates: start: 2022
  5. TREPROSTINIL [Suspect]
     Active Substance: TREPROSTINIL
     Dosage: 48 UG, 4X/DAY
     Dates: start: 2022
  6. TYVASO [Suspect]
     Active Substance: TREPROSTINIL
     Indication: Pulmonary arterial hypertension
     Dosage: UNK
  7. LETAIRIS [Concomitant]
     Active Substance: AMBRISENTAN
     Dosage: UNK
  8. TADALAFIL [Concomitant]
     Active Substance: TADALAFIL
     Dosage: UNK
  9. AMLODIPINE [Concomitant]
     Active Substance: AMLODIPINE BESYLATE
     Dosage: UNK

REACTIONS (10)
  - Oxygen saturation decreased [Unknown]
  - Constipation [Unknown]
  - Diarrhoea [Unknown]
  - Asthenia [Unknown]
  - Poor peripheral circulation [Unknown]
  - Muscular weakness [Unknown]
  - Productive cough [Unknown]
  - Sputum discoloured [Unknown]
  - Feeling abnormal [Unknown]
  - Joint effusion [Unknown]
